FAERS Safety Report 22634936 (Version 1)
Quarter: 2023Q2

REPORT INFORMATION
  Report Type: Spontaneous
  Country: US (occurrence: US)
  Receive Date: 20230623
  Receipt Date: 20230623
  Transmission Date: 20230721
  Serious: No
  Sender: FDA-Public Use
  Company Number: US-SANOFI-01662460

PATIENT
  Age: 64 Year
  Sex: Female

DRUGS (1)
  1. TOUJEO MAX [Suspect]
     Active Substance: INSULIN GLARGINE
     Indication: Type 2 diabetes mellitus
     Dosage: 50 UNITS 2 TO 3 TIMES A DAY; DRUG TREATMENT DURATION:4 YEARS

REACTIONS (1)
  - Inappropriate schedule of product administration [Unknown]
